FAERS Safety Report 8860689 (Version 2)
Quarter: 2012Q4

REPORT INFORMATION
  Report Type: 
  Country: FR (occurrence: FR)
  Receive Date: 20121025
  Receipt Date: 20121101
  Transmission Date: 20130627
  Serious: Yes (Hospitalization)
  Sender: FDA-Public Use
  Company Number: FR-ABBOTT-12P-056-0996432-00

PATIENT
  Age: 30 Year
  Sex: Female

DRUGS (7)
  1. ZECLAR [Suspect]
     Indication: ODYNOPHAGIA
     Route: 048
     Dates: start: 20120702, end: 20120707
  2. ZECLAR [Suspect]
  3. CLARITIN [Suspect]
     Indication: ODYNOPHAGIA
     Route: 048
     Dates: start: 20120702
  4. SOLUPRED [Suspect]
     Indication: ODYNOPHAGIA
     Route: 048
     Dates: start: 20120704
  5. METHYLPREDNISOLONE SODIUM SUCCINATE [Suspect]
     Indication: ODYNOPHAGIA
     Route: 030
     Dates: start: 20120703, end: 20120703
  6. MONURIL [Concomitant]
     Indication: CYSTITIS
     Route: 048
     Dates: start: 20120704
  7. DAFALGAN CODEINE [Concomitant]
     Indication: PRODUCT USED FOR UNKNOWN INDICATION
     Route: 048
     Dates: start: 20120704

REACTIONS (7)
  - Lip oedema [Recovered/Resolved]
  - Rash maculo-papular [Recovered/Resolved]
  - Self-medication [Unknown]
  - Lip swelling [Unknown]
  - Swollen tongue [Unknown]
  - Cheilitis [Unknown]
  - Gingival erosion [Unknown]
